FAERS Safety Report 7918832-1 (Version None)
Quarter: 2011Q4

REPORT INFORMATION
  Report Type: 
  Country: None (occurrence: None)
  Receive Date: 20111116
  Receipt Date: 20111104
  Transmission Date: 20120403
  Serious: Yes (Other)
  Sender: FDA-Public Use
  Company Number: PHHY2011KR098234

PATIENT
  Age: 51 Year
  Sex: Female

DRUGS (3)
  1. CYCLOPHOSPHAMIDE [Concomitant]
     Indication: IMMUNOSUPPRESSION
     Dosage: 500 MG, UNK
  2. METHYLPREDNISOLONE [Suspect]
     Indication: IMMUNOSUPPRESSION
     Dosage: 750 MG, FOR 3 DAYS
  3. PREDNISOLONE [Suspect]
     Indication: IMMUNOSUPPRESSION
     Dosage: 60 MG, UNK

REACTIONS (5)
  - HYPERGLYCAEMIC HYPEROSMOLAR NONKETOTIC SYNDROME [None]
  - MYOCLONIC EPILEPSY [None]
  - NORMOCHROMIC NORMOCYTIC ANAEMIA [None]
  - THROMBOCYTOPENIA [None]
  - CEREBRAL ATROPHY [None]
